FAERS Safety Report 6803952-5 (Version None)
Quarter: 2010Q2

REPORT INFORMATION
  Report Type: 
  Country: None (occurrence: None)
  Receive Date: 20100628
  Receipt Date: 20060428
  Transmission Date: 20101027
  Serious: No
  Sender: FDA-Public Use
  Company Number: US-PFIZER INC-2006059721

PATIENT
  Sex: Female
  Weight: 104.33 kg

DRUGS (5)
  1. SUTENT [Suspect]
     Indication: RENAL CANCER
     Route: 048
     Dates: start: 20060403
  2. LEVOXYL [Concomitant]
     Indication: HYPOTHYROIDISM
     Route: 065
  3. WARFARIN [Concomitant]
     Route: 065
  4. FOLIC ACID [Concomitant]
     Route: 065
  5. VITAMIN B-12 [Concomitant]
     Route: 065

REACTIONS (1)
  - BLOOD THYROID STIMULATING HORMONE INCREASED [None]
